FAERS Safety Report 15328516 (Version 2)
Quarter: 2018Q3

REPORT INFORMATION
  Report Type: Spontaneous
  Country: JP (occurrence: JP)
  Receive Date: 20180829
  Receipt Date: 20180905
  Transmission Date: 20181010
  Serious: Yes (Other)
  Sender: FDA-Public Use
  Company Number: JP-TAKEDA-2018TJP017623

PATIENT
  Age: 73 Year
  Sex: Female

DRUGS (3)
  1. REVLIMID [Suspect]
     Active Substance: LENALIDOMIDE
     Indication: PLASMA CELL LEUKAEMIA
     Dosage: UNK
     Route: 048
     Dates: start: 2017
  2. DEXAMETHASONE. [Concomitant]
     Active Substance: DEXAMETHASONE
     Indication: PLASMA CELL LEUKAEMIA
     Dosage: UNK
     Route: 048
     Dates: start: 2017
  3. NINLARO [Suspect]
     Active Substance: IXAZOMIB CITRATE
     Indication: PLASMA CELL LEUKAEMIA
     Dosage: 2.3 MG, UNK
     Route: 048
     Dates: start: 2017

REACTIONS (3)
  - Product use in unapproved indication [Unknown]
  - Acute febrile neutrophilic dermatosis [Recovered/Resolved]
  - Plasma cell leukaemia [Unknown]

NARRATIVE: CASE EVENT DATE: 2017
